FAERS Safety Report 18577992 (Version 2)
Quarter: 2024Q1

REPORT INFORMATION
  Report Type: Other
  Country: ES (occurrence: None)
  Receive Date: 20201204
  Receipt Date: 20240119
  Transmission Date: 20240410
  Serious: Yes (Other)
  Sender: FDA-Public Use
  Company Number: ES-ROCHE-2725012

PATIENT
  Age: 60 Year
  Sex: Male
  Weight: 97 kg

DRUGS (4)
  1. ATEZOLIZUMAB [Suspect]
     Active Substance: ATEZOLIZUMAB
     Indication: Non-small cell lung cancer metastatic
     Dosage: DATE OF SUBSEQUENT INFUSION:11/APR/2019, 06/MAY/2019, 28/MAY/2019,19/JUN/2019,10/JUL/2019, 01/AUG/20
     Route: 041
     Dates: start: 20190411
  2. RUPATADINA [Concomitant]
     Dates: start: 20190712
  3. POLARAMINE [Concomitant]
     Active Substance: DEXCHLORPHENIRAMINE MALEATE
     Indication: Skin toxicity
     Dates: start: 20190528, end: 20190709
  4. VITAMIN E [Concomitant]
     Active Substance: .ALPHA.-TOCOPHEROL

REACTIONS (1)
  - Hepatotoxicity [Recovered/Resolved]

NARRATIVE: CASE EVENT DATE: 20201008
